FAERS Safety Report 12671276 (Version 1)
Quarter: 2016Q3

REPORT INFORMATION
  Report Type: Spontaneous
  Country: US (occurrence: US)
  Receive Date: 20160822
  Receipt Date: 20160822
  Transmission Date: 20161109
  Serious: No
  Sender: FDA-Public Use
  Company Number: US-TEVA-619514USA

PATIENT
  Age: 67 Year
  Sex: Female
  Weight: 67.12 kg

DRUGS (16)
  1. LETROZOLE. [Concomitant]
     Active Substance: LETROZOLE
  2. VITAMIN B12 [Concomitant]
     Active Substance: CYANOCOBALAMIN
  3. SELENIUM [Concomitant]
     Active Substance: SELENIUM
  4. FEXOFENADINE [Suspect]
     Active Substance: FEXOFENADINE\FEXOFENADINE HYDROCHLORIDE
     Indication: PROPHYLAXIS
     Dates: start: 2013
  5. MELATONIN [Concomitant]
     Active Substance: MELATONIN
  6. MILK THISTLE [Concomitant]
     Active Substance: MILK THISTLE
  7. POTASSIUM [Concomitant]
     Active Substance: POTASSIUM
  8. LOVASTATIN. [Concomitant]
     Active Substance: LOVASTATIN
  9. SINGULAIR [Concomitant]
     Active Substance: MONTELUKAST SODIUM
  10. PROBIOTICS NOS [Concomitant]
     Active Substance: PROBIOTICS NOS
  11. FUROSEMIDE. [Concomitant]
     Active Substance: FUROSEMIDE
  12. AMLODIPINE [Concomitant]
     Active Substance: AMLODIPINE BESYLATE
  13. MAGNESIUM [Concomitant]
     Active Substance: MAGNESIUM
  14. METFORMIN [Concomitant]
     Active Substance: METFORMIN HYDROCHLORIDE
  15. VITAMIN D3 [Concomitant]
     Active Substance: CHOLECALCIFEROL
  16. TUMERIC [Concomitant]
     Active Substance: TURMERIC

REACTIONS (3)
  - Drug administered to patient of inappropriate age [Unknown]
  - Insomnia [Not Recovered/Not Resolved]
  - Product use issue [Unknown]

NARRATIVE: CASE EVENT DATE: 2013
